FAERS Safety Report 6951563-3 (Version None)
Quarter: 2010Q3

REPORT INFORMATION
  Report Type: 
  Country: None (occurrence: None)
  Receive Date: 20100828
  Receipt Date: 20100326
  Transmission Date: 20110219
  Serious: No
  Sender: FDA-Public Use
  Company Number: US-ABBOTT-10P-163-0635891-00

PATIENT
  Sex: Female
  Weight: 95.34 kg

DRUGS (10)
  1. NIASPAN [Suspect]
     Indication: PRODUCT USED FOR UNKNOWN INDICATION
     Route: 048
     Dates: start: 20091101, end: 20091201
  2. NIASPAN [Suspect]
     Route: 048
     Dates: start: 20091201, end: 20100320
  3. ASPIRIN [Concomitant]
     Indication: PROPHYLAXIS
     Dosage: 30 MINUTES BEFORE NIASPAN, DAILY
     Route: 048
  4. ASPIRIN [Concomitant]
     Route: 048
  5. ASPIRIN [Concomitant]
     Route: 048
  6. ACTOS [Concomitant]
     Indication: DIABETES MELLITUS
  7. SYNTHROID [Concomitant]
     Indication: HYPOTHYROIDISM
  8. NEXIUM [Concomitant]
     Indication: GASTROOESOPHAGEAL REFLUX DISEASE
  9. FISH OIL [Concomitant]
     Indication: SUPPLEMENTATION THERAPY
  10. VITAMIN B COMPLEX CAP [Concomitant]
     Indication: VITAMIN SUPPLEMENTATION

REACTIONS (4)
  - DRUG INTOLERANCE [None]
  - FLUSHING [None]
  - INAPPROPRIATE SCHEDULE OF DRUG ADMINISTRATION [None]
  - PRURITUS [None]
